FAERS Safety Report 22135810 (Version 2)
Quarter: 2023Q2

REPORT INFORMATION
  Report Type: Spontaneous
  Country: US (occurrence: US)
  Receive Date: 20230324
  Receipt Date: 20230424
  Transmission Date: 20230721
  Serious: Yes (Other)
  Sender: FDA-Public Use
  Company Number: US-BAYER-2023A034928

PATIENT
  Age: 33 Year
  Sex: Female
  Weight: 66.667 kg

DRUGS (2)
  1. MIRENA [Suspect]
     Active Substance: LEVONORGESTREL
     Indication: Contraception
     Dosage: 20?G/DAY
     Route: 015
     Dates: start: 202205, end: 20230327
  2. LIDOCAINE [Concomitant]
     Active Substance: LIDOCAINE
     Indication: Nerve block
     Dosage: UNK
     Dates: start: 20230327

REACTIONS (3)
  - Embedded device [Recovered/Resolved]
  - Heavy menstrual bleeding [None]
  - Device use error [None]

NARRATIVE: CASE EVENT DATE: 20230206
